FAERS Safety Report 9628821 (Version 1)
Quarter: 2013Q4

REPORT INFORMATION
  Report Type: Spontaneous
  Country: US (occurrence: US)
  Receive Date: 20131017
  Receipt Date: 20131017
  Transmission Date: 20140711
  Serious: Yes (Death, Other)
  Sender: FDA-Public Use
  Company Number: US-ELI_LILLY_AND_COMPANY-US201310002601

PATIENT
  Age: 82 Year
  Sex: Male

DRUGS (3)
  1. CYMBALTA [Suspect]
     Indication: DEPRESSION
     Dosage: 60 MG, QD
     Route: 065
  2. CYMBALTA [Suspect]
     Dosage: 30 MG, QD
     Route: 065
  3. CYMBALTA [Suspect]
     Dosage: 30 MG, QOD
     Dates: end: 201307

REACTIONS (3)
  - Completed suicide [Fatal]
  - Normal pressure hydrocephalus [Unknown]
  - Drug ineffective [Unknown]
